FAERS Safety Report 9180069 (Version 1)
Quarter: 2013Q1

REPORT INFORMATION
  Report Type: Spontaneous
  Country: GB (occurrence: GB)
  Receive Date: 20130321
  Receipt Date: 20130321
  Transmission Date: 20140127
  Serious: Yes (Disabling)
  Sender: FDA-Public Use
  Company Number: PHFR2013GB000491

PATIENT
  Age: 56 Year
  Sex: Female

DRUGS (1)
  1. AMANTADINE [Suspect]
     Indication: DYSTONIA
     Dosage: 200 MG, DAILY
     Route: 048
     Dates: start: 201209, end: 201301

REACTIONS (2)
  - Diplopia [Recovered/Resolved]
  - Palpitations [Recovered/Resolved]
